FAERS Safety Report 15699194 (Version 2)
Quarter: 2018Q4

REPORT INFORMATION
  Report Type: Spontaneous
  Country: PH (occurrence: PH)
  Receive Date: 20181207
  Receipt Date: 20181215
  Transmission Date: 20190205
  Serious: Yes (Death, Other)
  Sender: FDA-Public Use
  Company Number: PH-009507513-1707PHL003399

PATIENT
  Age: 62 Year
  Sex: Male

DRUGS (4)
  1. KEYTRUDA [Suspect]
     Active Substance: PEMBROLIZUMAB
     Indication: NON-SMALL CELL LUNG CANCER
     Dosage: UNK (LAST CYCLE)
     Dates: start: 201809
  2. KEYTRUDA [Suspect]
     Active Substance: PEMBROLIZUMAB
     Indication: LUNG SQUAMOUS CELL CARCINOMA STAGE IV
     Dosage: 2 MG/KG, EVERY 3 WEEKS
     Dates: start: 2016
  3. DOCETAXEL. [Suspect]
     Active Substance: DOCETAXEL
     Dosage: 2 CYCLE
  4. CETUXIMAB. [Suspect]
     Active Substance: CETUXIMAB
     Dosage: 1 CYCLE

REACTIONS (1)
  - Malignant neoplasm progression [Fatal]

NARRATIVE: CASE EVENT DATE: 201808
